FAERS Safety Report 17611532 (Version 1)
Quarter: 2020Q2

REPORT INFORMATION
  Report Type: Report from Study
  Country: US (occurrence: US)
  Receive Date: 20200401
  Receipt Date: 20200401
  Transmission Date: 20200713
  Serious: No
  Sender: FDA-Public Use
  Company Number: US-RETROPHIN, INC.-2019RTN00098

PATIENT
  Sex: Male

DRUGS (2)
  1. CHOLBAM [Suspect]
     Active Substance: CHOLIC ACID
     Indication: INBORN ERROR IN PRIMARY BILE ACID SYNTHESIS
     Dosage: 200 MG, 1X/DAY LATER IN THE DAY
     Dates: start: 20161028
  2. CHOLBAM [Suspect]
     Active Substance: CHOLIC ACID
     Dosage: 200 MG, 1X/DAY IN THE MORNING

REACTIONS (2)
  - Psychomotor hyperactivity [Recovered/Resolved]
  - Insomnia [Recovered/Resolved]
